FAERS Safety Report 8560711-3 (Version None)
Quarter: 2012Q3

REPORT INFORMATION
  Report Type: 
  Country: None (occurrence: None)
  Receive Date: 20120802
  Receipt Date: 20120731
  Transmission Date: 20120928
  Serious: Yes (Other)
  Sender: FDA-Public Use
  Company Number: PHHY2012AU064506

PATIENT
  Sex: Male
  Weight: 102 kg

DRUGS (3)
  1. CLOZARIL [Suspect]
     Indication: SCHIZOPHRENIA
     Dosage: 450 MG, NOCTE
     Route: 048
     Dates: start: 20000315
  2. VENLAFAXINE [Concomitant]
     Dosage: 300 MG, UNK
  3. ATORVASTATIN [Concomitant]

REACTIONS (3)
  - NEUTROPHILIA [None]
  - BUNDLE BRANCH BLOCK RIGHT [None]
  - LYMPHOPENIA [None]
